FAERS Safety Report 20479920 (Version 1)
Quarter: 2022Q1

REPORT INFORMATION
  Report Type: Spontaneous
  Country: DE (occurrence: DE)
  Receive Date: 20220216
  Receipt Date: 20220216
  Transmission Date: 20220424
  Serious: Yes (Congenital Anomaly)
  Sender: FDA-Public Use
  Company Number: DE-EMBRYOTOX-202011694

PATIENT
  Age: 1 Day
  Sex: Male

DRUGS (3)
  1. DULOXETINE [Suspect]
     Active Substance: DULOXETINE
     Indication: Generalised anxiety disorder
     Dosage: 30 MILLIGRAM DAILY; 30 [MG/D ]
     Route: 064
  2. PROGESTERONE [Concomitant]
     Active Substance: PROGESTERONE
     Indication: Prophylaxis of abortion
     Dosage: 200 MILLIGRAM DAILY; 200 [MG/D ]
     Route: 064
  3. Lora-ADGC [Concomitant]
     Indication: Hypersensitivity
     Dosage: 10 MILLIGRAM DAILY; 10 [MG/D ]
     Route: 064

REACTIONS (4)
  - Haemangioma [Unknown]
  - Congenital skin dimples [Unknown]
  - Tethered cord syndrome [Unknown]
  - Foetal exposure during pregnancy [Unknown]

NARRATIVE: CASE EVENT DATE: 20200914
